FAERS Safety Report 8757796 (Version 1)
Quarter: 2012Q4

REPORT INFORMATION
  Report Type: Report from Study
  Country: US (occurrence: US)
  Receive Date: 20120828
  Receipt Date: 20120828
  Transmission Date: 20130627
  Serious: Yes (Other)
  Sender: FDA-Public Use
  Company Number: US-ROCHE-1083400

PATIENT
  Sex: Male

DRUGS (4)
  1. PEGASYS [Suspect]
     Indication: HEPATITIS C
     Route: 058
     Dates: start: 20120618, end: 20120818
  2. VICTRELIS [Suspect]
     Indication: HEPATITIS C
  3. RIBAVIRIN [Suspect]
     Indication: HEPATITIS C
     Dosage: divided doses
     Route: 048
     Dates: start: 20120618, end: 20120818
  4. RIBAVIRIN [Suspect]

REACTIONS (12)
  - Insomnia [Recovered/Resolved]
  - Headache [Unknown]
  - White blood cell count decreased [Unknown]
  - Red blood cell count decreased [Unknown]
  - Fatigue [Unknown]
  - Nausea [Unknown]
  - Anaemia [Unknown]
  - Oedema peripheral [Unknown]
  - Drug ineffective [Unknown]
  - Muscle spasms [Unknown]
  - Chest discomfort [Unknown]
  - Generalised oedema [Unknown]
